FAERS Safety Report 14586925 (Version 1)
Quarter: 2018Q1

REPORT INFORMATION
  Report Type: Spontaneous
  Country: US (occurrence: US)
  Receive Date: 20180301
  Receipt Date: 20180301
  Transmission Date: 20180509
  Serious: Yes (Other)
  Sender: FDA-Public Use
  Company Number: US-AEGERION PHARMACEUTICAL, INC-AEGR003655

PATIENT
  Age: 3 Year
  Sex: Female
  Weight: 9.48 kg

DRUGS (1)
  1. MYALEPT [Suspect]
     Active Substance: METRELEPTIN
     Indication: LIPODYSTROPHY ACQUIRED
     Dosage: 0.5 MG, QD
     Route: 058

REACTIONS (1)
  - Failure to thrive [Unknown]

NARRATIVE: CASE EVENT DATE: 20180129
